FAERS Safety Report 6838079-X (Version None)
Quarter: 2010Q3

REPORT INFORMATION
  Report Type: 
  Country: None (occurrence: None)
  Receive Date: 20100713
  Receipt Date: 20070529
  Transmission Date: 20110219
  Serious: No
  Sender: FDA-Public Use
  Company Number: US-PFIZER INC-2007046420

PATIENT
  Sex: Male
  Weight: 77.6 kg

DRUGS (3)
  1. CHANTIX [Suspect]
     Indication: SMOKING CESSATION THERAPY
     Dates: start: 20070101, end: 20070101
  2. TEA, GREEN [Concomitant]
  3. VITAMINS [Concomitant]

REACTIONS (1)
  - RASH PAPULAR [None]
